FAERS Safety Report 4534890-9 (Version None)
Quarter: 2004Q4

REPORT INFORMATION
  Report Type: 
  Country: None (occurrence: None)
  Receive Date: 20041222
  Receipt Date: 20040624
  Transmission Date: 20050328
  Serious: No
  Sender: FDA-Public Use
  Company Number: US-BRISTOL-MYERS SQUIBB COMPANY-12625042

PATIENT
  Age: 75 Year
  Sex: Male
  Weight: 93 kg

DRUGS (9)
  1. PRAVACHOL [Suspect]
     Indication: BLOOD CHOLESTEROL INCREASED
     Route: 048
  2. LASIX [Concomitant]
  3. VERAPAMIL [Concomitant]
  4. VASOTEC [Concomitant]
  5. ALLEGRA [Concomitant]
  6. VITAMIN C AND E [Concomitant]
  7. ZINC [Concomitant]
  8. POTASSIUM SUPPLEMENT [Concomitant]
  9. VITAMIN B-12 [Concomitant]

REACTIONS (3)
  - BLOOD CHOLESTEROL INCREASED [None]
  - BLOOD TRIGLYCERIDES INCREASED [None]
  - RED BLOOD CELL COUNT INCREASED [None]
